FAERS Safety Report 19359497 (Version 1)
Quarter: 2021Q2

REPORT INFORMATION
  Report Type: Spontaneous
  Country: US (occurrence: US)
  Receive Date: 20210602
  Receipt Date: 20210602
  Transmission Date: 20210717
  Serious: No
  Sender: FDA-Public Use
  Company Number: US-009507513-2105USA000475

PATIENT
  Age: 37 Year
  Sex: Female

DRUGS (1)
  1. INTRON A [Suspect]
     Active Substance: INTERFERON ALFA-2B
     Indication: CHRONIC MYELOID LEUKAEMIA
     Dosage: 0.5 MILLILITER, TIW
     Route: 030

REACTIONS (3)
  - Product dose omission issue [Unknown]
  - Influenza like illness [Unknown]
  - Pain [Unknown]

NARRATIVE: CASE EVENT DATE: 20210201
